FAERS Safety Report 7127498-2 (Version None)
Quarter: 2010Q4

REPORT INFORMATION
  Report Type: 
  Country: None (occurrence: None)
  Receive Date: 20101129
  Receipt Date: 20100727
  Transmission Date: 20110411
  Serious: Yes (Other)
  Sender: FDA-Public Use
  Company Number: US-PFIZER INC-2010075944

PATIENT
  Sex: Male
  Weight: 74.842 kg

DRUGS (2)
  1. VIAGRA [Suspect]
     Indication: SEXUAL DYSFUNCTION
     Dosage: UNK
  2. CIALIS [Suspect]
     Indication: SEXUAL DYSFUNCTION
     Dosage: UNK

REACTIONS (2)
  - PHOTOPSIA [None]
  - VITREOUS DETACHMENT [None]
